FAERS Safety Report 9263506 (Version 1)
Quarter: 2013Q2

REPORT INFORMATION
  Report Type: Spontaneous
  Country: US (occurrence: None)
  Receive Date: 20130426
  Receipt Date: 20130426
  Transmission Date: 20140414
  Serious: Yes (Hospitalization)
  Sender: FDA-Public Use
  Company Number: FK201301270

PATIENT
  Age: 54 Year
  Sex: Male

DRUGS (1)
  1. FLUDARABINE [Suspect]
     Indication: CHRONIC LYMPHOCYTIC LEUKAEMIA

REACTIONS (5)
  - Herpes zoster [None]
  - Pancreatitis [None]
  - Hepatitis [None]
  - Ileus [None]
  - White blood cell count decreased [None]
